FAERS Safety Report 24998257 (Version 3)
Quarter: 2025Q2

REPORT INFORMATION
  Report Type: Spontaneous
  Country: US (occurrence: US)
  Receive Date: 20250222
  Receipt Date: 20250515
  Transmission Date: 20250717
  Serious: Yes (Hospitalization, Other)
  Sender: SANOFI AVENTIS
  Company Number: US-SA-2025SA044090

PATIENT
  Age: 71 Year
  Sex: Male

DRUGS (1)
  1. DUPIXENT [Suspect]
     Active Substance: DUPILUMAB
     Indication: Chronic obstructive pulmonary disease
     Dosage: 300 MG, QOW
     Route: 058
     Dates: start: 20241019

REACTIONS (10)
  - Chest pain [Unknown]
  - Internal haemorrhage [Unknown]
  - Dizziness [Unknown]
  - Abdominal discomfort [Unknown]
  - Constipation [Unknown]
  - Blood potassium decreased [Unknown]
  - Dyspnoea [Unknown]
  - Weight decreased [Unknown]
  - Condition aggravated [Unknown]
  - Pain in extremity [Recovering/Resolving]

NARRATIVE: CASE EVENT DATE: 20250101
